FAERS Safety Report 5781212-1 (Version None)
Quarter: 2008Q2

REPORT INFORMATION
  Report Type: 
  Country: None (occurrence: None)
  Receive Date: 20080606
  Receipt Date: 20080527
  Transmission Date: 20081010
  Serious: Yes (Hospitalization)
  Sender: FDA-Public Use
  Company Number: THYM-1000650

PATIENT
  Age: 67 Year
  Sex: Male
  Weight: 72.1 kg

DRUGS (19)
  1. THYMOGLOBULIN  (ANTI-THYMOCYTE GLOBULIN (RABBIT)) [Suspect]
     Indication: MULTIPLE MYELOMA
     Dosage: 242 MG, ONCE; INTRAVENOUS; 80.6 MG, ONCE,
     Route: 042
     Dates: start: 20080307, end: 20080308
  2. THYMOGLOBULIN  (ANTI-THYMOCYTE GLOBULIN (RABBIT)) [Suspect]
     Indication: MULTIPLE MYELOMA
     Dosage: 242 MG, ONCE; INTRAVENOUS; 80.6 MG, ONCE,
     Route: 042
     Dates: start: 20080308, end: 20080308
  3. AMOXICILLIN 9AMOXICILLIN TRIHYDRATE) [Concomitant]
  4. ASPIRIN (SALICYLAMIDE) [Concomitant]
  5. LIPITOR [Concomitant]
  6. NEXIUM (ESOMEPRAZOLE SODIUM) [Concomitant]
  7. METOPROLOL TARTRATE [Concomitant]
  8. MUCOMYST (ACETYLCYSTEINE SODIUM) [Concomitant]
  9. OXYCONTIN [Concomitant]
  10. PREDNISOLONE ACETATE [Concomitant]
  11. NITROPASTE (GLYCERYL TRINITRATE) [Concomitant]
  12. HEPARIN [Concomitant]
  13. VICODIN [Concomitant]
  14. METHYLPREDNISOLONE [Concomitant]
  15. ACETAMINOPHEN [Concomitant]
  16. LISINOPRIL (LISINOPRIL DIHYDRATE) [Concomitant]
  17. PERCOCET (OXYCODONE TEREPHTHALATE, PARACETAMOL) [Concomitant]
  18. ROBITUSSIN      (GUAIFENISIN) [Concomitant]
  19. SENNA LAXATIVE (SENNOSIDE A+B) [Concomitant]

REACTIONS (17)
  - ACUTE MYOCARDIAL INFARCTION [None]
  - ANOREXIA [None]
  - ASTHENIA [None]
  - BLOOD ALBUMIN DECREASED [None]
  - BLOOD CALCIUM INCREASED [None]
  - BLOOD CHLORIDE DECREASED [None]
  - BLOOD ELECTROLYTES DECREASED [None]
  - BLOOD UREA INCREASED [None]
  - BONE PAIN [None]
  - DECREASED APPETITE [None]
  - DRUG HYPERSENSITIVITY [None]
  - EYE PAIN [None]
  - HAEMATOCRIT DECREASED [None]
  - HAEMOGLOBIN DECREASED [None]
  - HYPOAESTHESIA [None]
  - HYPOTENSION [None]
  - THROMBOCYTOPENIA [None]
